FAERS Safety Report 15646275 (Version 1)
Quarter: 2018Q4

REPORT INFORMATION
  Report Type: Report from Study
  Country: US (occurrence: US)
  Receive Date: 20181122
  Receipt Date: 20181122
  Transmission Date: 20190205
  Serious: Yes (Life-Threatening, Hospitalization, Other)
  Sender: FDA-Public Use
  Company Number: PHEH2018US049173

PATIENT
  Sex: Male

DRUGS (3)
  1. ENTRESTO [Suspect]
     Active Substance: SACUBITRIL\VALSARTAN
     Indication: PRODUCT USED FOR UNKNOWN INDICATION
     Route: 065
  2. NITRO [Suspect]
     Active Substance: NITROGLYCERIN
     Indication: CHEST PAIN
     Route: 065
  3. NITRO [Suspect]
     Active Substance: NITROGLYCERIN
     Indication: PAIN IN EXTREMITY

REACTIONS (6)
  - Feeling abnormal [Unknown]
  - Pain in extremity [Unknown]
  - Fatigue [Unknown]
  - Hypotension [Unknown]
  - Atrial fibrillation [Unknown]
  - Chest pain [Unknown]
